FAERS Safety Report 9254855 (Version 1)
Quarter: 2013Q2

REPORT INFORMATION
  Report Type: Spontaneous
  Country: FR (occurrence: None)
  Receive Date: 20130422
  Receipt Date: 20130422
  Transmission Date: 20140414
  Serious: Yes (Hospitalization)
  Sender: FDA-Public Use
  Company Number: 1674635

PATIENT
  Age: 29 Year
  Sex: Female

DRUGS (12)
  1. (CARBOPLATIN) [Suspect]
     Indication: LYMPHOPROLIFERATIVE DISORDER
     Dosage: INTRAVENOUS (NOT OTHERWISE SPECIFIED)?
     Route: 042
     Dates: start: 20130130, end: 20130130
  2. (HOLOXAN) [Suspect]
     Indication: LYMPHOPROLIFERATIVE DISORDER
     Dosage: INTRAVENOUS (NOT OTHERWISE SPECIFIED)?
     Route: 042
     Dates: start: 20130129, end: 20130130
  3. (ETOPOPHOS) [Suspect]
     Indication: LYMPHOPROLIFERATIVE DISORDER
     Dosage: INTRAVENOUS (NOT OTHERWISE SPECIFIED)?
     Route: 042
     Dates: start: 20130128, end: 20130130
  4. (VALACICLOVIR) [Concomitant]
     Indication: PRODUCT USED FOR UNKNOWN INDICATION
     Dosage: ?
  5. (VFEND) [Concomitant]
  6. (UROMITEXAN) [Concomitant]
  7. (COTRIMOXAZOLE) [Concomitant]
  8. PREDNISONE [Concomitant]
  9. (ESCITALOPRAM) [Concomitant]
  10. (OMEPRAZOLE) [Concomitant]
  11. (URSODESOXYCHOLIC ACID) [Concomitant]
  12. (APREPITANT) [Concomitant]

REACTIONS (5)
  - Renal failure acute [None]
  - Oliguria [None]
  - Septic shock [None]
  - Aplasia [None]
  - Resuscitation [None]
